FAERS Safety Report 5336698-3 (Version None)
Quarter: 2007Q2

REPORT INFORMATION
  Report Type: 
  Country: None (occurrence: None)
  Receive Date: 20070524
  Receipt Date: 20070524
  Transmission Date: 20071010
  Serious: Yes (Hospitalization)
  Sender: FDA-Public Use
  Company Number: None

PATIENT
  Age: 71 Year
  Sex: Female

DRUGS (6)
  1. LEVAQUIN [Suspect]
     Indication: ANTI-INFECTIVE THERAPY
     Dosage: 500G DAILY PO RECENT
     Route: 048
  2. PREDNISONE TAB [Concomitant]
  3. LEVOXYL [Concomitant]
  4. DIOVAN [Concomitant]
  5. DIGOXIN [Concomitant]
  6. ASPIRIN [Concomitant]

REACTIONS (6)
  - BLOOD POTASSIUM INCREASED [None]
  - CARDIAC ARREST [None]
  - CARDIOACTIVE DRUG LEVEL INCREASED [None]
  - DRUG LEVEL INCREASED [None]
  - RENAL FAILURE ACUTE [None]
  - VENTRICULAR TACHYCARDIA [None]
